FAERS Safety Report 16764379 (Version 4)
Quarter: 2019Q3

REPORT INFORMATION
  Report Type: Spontaneous
  Country: DE (occurrence: DE)
  Receive Date: 20190902
  Receipt Date: 20190930
  Transmission Date: 20191005
  Serious: Yes (Other)
  Sender: FDA-Public Use
  Company Number: PHHY2019DE201488

PATIENT
  Age: 27 Year
  Sex: Female

DRUGS (1)
  1. CICLOSPORIN [Suspect]
     Active Substance: CYCLOSPORINE
     Indication: APLASTIC ANAEMIA
     Dosage: UNK
     Route: 065

REACTIONS (10)
  - Glaucoma [Recovered/Resolved]
  - Ciliary body disorder [Recovered/Resolved]
  - Myopia [Recovered/Resolved]
  - Mydriasis [Recovered/Resolved]
  - Visual impairment [Recovered/Resolved]
  - Eye pain [Recovered/Resolved]
  - Drug level increased [Unknown]
  - Chorioretinal folds [Recovered/Resolved]
  - Retinal detachment [Recovered/Resolved]
  - Product use in unapproved indication [Unknown]
